FAERS Safety Report 15699653 (Version 1)
Quarter: 2018Q4

REPORT INFORMATION
  Report Type: Spontaneous
  Country: AU (occurrence: AU)
  Receive Date: 20181207
  Receipt Date: 20181207
  Transmission Date: 20190205
  Serious: Yes (Hospitalization, Other)
  Sender: FDA-Public Use
  Company Number: IND-AU-009507513-1811AUS011781

PATIENT
  Age: 67 Year
  Sex: Male

DRUGS (3)
  1. ROCURONIUM BROMIDE. [Suspect]
     Active Substance: ROCURONIUM BROMIDE
     Dosage: 100 MILLIGRAM, ONCE
     Route: 042
  2. PROPOFOL. [Concomitant]
     Active Substance: PROPOFOL
     Dosage: 200 MILLIGRAM, ONCE
     Route: 042
  3. FENTANYL. [Concomitant]
     Active Substance: FENTANYL
     Dosage: 50 MICROGRAM, ONCE
     Route: 042

REACTIONS (5)
  - Cardiac arrest [Recovered/Resolved]
  - Systolic anterior motion of mitral valve [Recovering/Resolving]
  - Anaphylactic reaction [Unknown]
  - Circulatory collapse [Recovering/Resolving]
  - Ventricular fibrillation [Recovered/Resolved]
